FAERS Safety Report 13940813 (Version 1)
Quarter: 2017Q3

REPORT INFORMATION
  Report Type: Spontaneous
  Country: US (occurrence: US)
  Receive Date: 20170906
  Receipt Date: 20170906
  Transmission Date: 20171127
  Serious: No
  Sender: FDA-Public Use
  Company Number: PHEH2017US027819

PATIENT
  Sex: Female

DRUGS (1)
  1. VOTRIENT [Suspect]
     Active Substance: PAZOPANIB HYDROCHLORIDE
     Indication: NEOPLASM MALIGNANT
     Dosage: 800 MG (4 TABLETS), QD
     Route: 048
     Dates: start: 20170513

REACTIONS (4)
  - Arthralgia [Unknown]
  - Fatigue [Unknown]
  - Headache [Unknown]
  - Diarrhoea [Unknown]
